FAERS Safety Report 7911190-8 (Version None)
Quarter: 2011Q4

REPORT INFORMATION
  Report Type: 
  Country: None (occurrence: None)
  Receive Date: 20111109
  Receipt Date: 20111027
  Transmission Date: 20120403
  Serious: Yes (Life-Threatening)
  Sender: FDA-Public Use
  Company Number: 2011MA015828

PATIENT
  Sex: Male

DRUGS (11)
  1. MIRTAZAPINE [Suspect]
     Indication: DEPRESSED MOOD
     Dosage: 15 MG;QD;PO
     Route: 048
     Dates: start: 20111003, end: 20111006
  2. SIMVASTATIN [Concomitant]
  3. HYDROBROMIDE [Concomitant]
  4. OMEPRAZOLE [Concomitant]
  5. CLOZAPINE [Concomitant]
  6. HYOSCINE [Concomitant]
  7. DIPYRIDAMOLE [Concomitant]
  8. AMOXICILLIN AND CLAVULANATE POTASSIUM [Concomitant]
  9. MIRTAZAPINE [Suspect]
     Indication: DEPRESSED MOOD
     Dosage: 30 MG;QD;PO
     Route: 048
     Dates: start: 20111006, end: 20111010
  10. LOPERAMIDE HCL [Concomitant]
  11. ACETYLSALICYLIC ACID SRT [Concomitant]

REACTIONS (1)
  - NEUROLEPTIC MALIGNANT SYNDROME [None]
